FAERS Safety Report 26010884 (Version 2)
Quarter: 2025Q4

REPORT INFORMATION
  Report Type: Spontaneous
  Country: US (occurrence: US)
  Receive Date: 20251107
  Receipt Date: 20251226
  Transmission Date: 20260118
  Serious: Yes (Other)
  Sender: TEVA
  Company Number: US-TEVA-VS-3387920

PATIENT

DRUGS (2)
  1. VENLAFAXINE [Suspect]
     Active Substance: VENLAFAXINE HYDROCHLORIDE
     Indication: Product used for unknown indication
     Dosage: ER
     Route: 065
  2. VILAZODONE [Suspect]
     Active Substance: VILAZODONE
     Indication: Product used for unknown indication
     Route: 065

REACTIONS (4)
  - Respiratory distress [Unknown]
  - Pruritus [Unknown]
  - Rash erythematous [Unknown]
  - Rash [Unknown]
